FAERS Safety Report 6708560-2 (Version None)
Quarter: 2010Q2

REPORT INFORMATION
  Report Type: 
  Country: None (occurrence: None)
  Receive Date: 20100503
  Receipt Date: 20100331
  Transmission Date: 20101027
  Serious: Yes (Death, Other)
  Sender: FDA-Public Use
  Company Number: US-BAXTER-2010BH001616

PATIENT
  Age: 48 Year
  Sex: Male

DRUGS (39)
  1. HEPARIN SODIUM INJECTION [Suspect]
     Indication: HAEMODIALYSIS
     Route: 065
     Dates: start: 20071201, end: 20071201
  2. HEPARIN SODIUM INJECTION [Suspect]
     Route: 065
     Dates: start: 20080212, end: 20080212
  3. HEPARIN SODIUM INJECTION [Suspect]
     Route: 065
     Dates: start: 20080207, end: 20080207
  4. HEPARIN SODIUM INJECTION [Suspect]
     Route: 065
     Dates: start: 20080205, end: 20080205
  5. HEPARIN SODIUM INJECTION [Suspect]
     Route: 065
     Dates: start: 20080202, end: 20080202
  6. HEPARIN SODIUM INJECTION [Suspect]
     Route: 065
     Dates: start: 20080131, end: 20080131
  7. HEPARIN SODIUM INJECTION [Suspect]
     Route: 065
     Dates: start: 20080129, end: 20080129
  8. HEPARIN SODIUM INJECTION [Suspect]
     Route: 065
     Dates: start: 20080126, end: 20080126
  9. HEPARIN SODIUM INJECTION [Suspect]
     Route: 065
     Dates: start: 20080124, end: 20080124
  10. HEPARIN SODIUM INJECTION [Suspect]
     Route: 065
     Dates: start: 20080122, end: 20080122
  11. HEPARIN SODIUM INJECTION [Suspect]
     Route: 065
     Dates: start: 20071231, end: 20071231
  12. HEPARIN SODIUM INJECTION [Suspect]
     Route: 065
     Dates: start: 20071229, end: 20071229
  13. HEPARIN SODIUM INJECTION [Suspect]
     Route: 065
     Dates: start: 20091227, end: 20071227
  14. HEPARIN SODIUM INJECTION [Suspect]
     Route: 065
     Dates: start: 20071222, end: 20071224
  15. HEPARIN SODIUM INJECTION [Suspect]
     Route: 065
     Dates: start: 20071213, end: 20071215
  16. HEPARIN SODIUM INJECTION [Suspect]
     Route: 065
     Dates: start: 20071208, end: 20071211
  17. HEPARIN SODIUM INJECTION [Suspect]
     Route: 065
     Dates: start: 20071206, end: 20071206
  18. HEPARIN SODIUM INJECTION [Suspect]
     Route: 065
     Dates: start: 20071204, end: 20071204
  19. CORDARONE [Concomitant]
     Indication: DRUG USE FOR UNKNOWN INDICATION
     Route: 065
  20. LIPITOR [Concomitant]
     Indication: DRUG USE FOR UNKNOWN INDICATION
     Route: 065
  21. NEURONTIN [Concomitant]
     Indication: DRUG USE FOR UNKNOWN INDICATION
     Route: 065
  22. IMIDIN [Concomitant]
     Indication: DRUG USE FOR UNKNOWN INDICATION
     Route: 065
  23. PRILOSEC [Concomitant]
     Indication: DRUG USE FOR UNKNOWN INDICATION
     Route: 065
  24. THYROID TAB [Concomitant]
     Indication: DRUG USE FOR UNKNOWN INDICATION
     Route: 065
  25. VITAMIN E [Concomitant]
     Indication: DRUG USE FOR UNKNOWN INDICATION
     Route: 065
  26. ASPIRIN [Concomitant]
     Indication: DRUG USE FOR UNKNOWN INDICATION
     Route: 065
  27. PHOSLO [Concomitant]
     Indication: DRUG USE FOR UNKNOWN INDICATION
     Route: 065
  28. COUMADIN [Concomitant]
     Indication: DRUG USE FOR UNKNOWN INDICATION
     Route: 065
  29. DARVOCET-N 100 [Concomitant]
     Indication: DRUG USE FOR UNKNOWN INDICATION
     Route: 065
  30. NEPHROCAPS [Concomitant]
     Indication: DRUG USE FOR UNKNOWN INDICATION
     Route: 065
  31. PROAMATINE [Concomitant]
     Indication: DRUG USE FOR UNKNOWN INDICATION
     Route: 065
  32. COLACE [Concomitant]
     Indication: DRUG USE FOR UNKNOWN INDICATION
     Route: 065
  33. DIGOXIN [Concomitant]
     Indication: DRUG USE FOR UNKNOWN INDICATION
     Route: 065
  34. NITROGLYCERIN [Concomitant]
     Indication: DRUG USE FOR UNKNOWN INDICATION
     Route: 065
  35. ATIVAN [Concomitant]
     Indication: DRUG USE FOR UNKNOWN INDICATION
     Route: 065
  36. ULTRAM [Concomitant]
     Indication: DRUG USE FOR UNKNOWN INDICATION
     Route: 065
  37. ARICEPT [Concomitant]
     Indication: DRUG USE FOR UNKNOWN INDICATION
     Route: 065
  38. INSULIN [Concomitant]
     Indication: DRUG USE FOR UNKNOWN INDICATION
     Route: 065
  39. GRANULEX [Concomitant]
     Indication: DRUG USE FOR UNKNOWN INDICATION
     Route: 065

REACTIONS (12)
  - ARTERIOSCLEROSIS CORONARY ARTERY [None]
  - COAGULOPATHY [None]
  - CONFUSIONAL STATE [None]
  - DECREASED APPETITE [None]
  - DIZZINESS [None]
  - DYSPNOEA [None]
  - HYPOTENSION [None]
  - LETHARGY [None]
  - NAUSEA [None]
  - RASH [None]
  - TACHYCARDIA [None]
  - TYPE 2 DIABETES MELLITUS [None]
